FAERS Safety Report 15330053 (Version 2)
Quarter: 2018Q3

REPORT INFORMATION
  Report Type: Spontaneous
  Country: DE (occurrence: DE)
  Receive Date: 20180829
  Receipt Date: 20180918
  Transmission Date: 20181010
  Serious: Yes (Other)
  Sender: FDA-Public Use
  Company Number: DE-ABBVIE-18S-062-2450912-00

PATIENT
  Age: 48 Year
  Sex: Male
  Weight: 74 kg

DRUGS (4)
  1. TESTOGEL [Suspect]
     Active Substance: TESTOSTERONE
     Indication: HYPOGONADISM
     Dosage: IN THE BEGINNING APPLICATION EVERY DAY
     Route: 062
     Dates: start: 2014
  2. TESTOGEL [Suspect]
     Active Substance: TESTOSTERONE
     Indication: HYPOGONADISM
     Dosage: APPLICATION OF 2 HUBS DAILY
     Route: 062
  3. TESTOGEL [Suspect]
     Active Substance: TESTOSTERONE
     Dosage: SINCE 2016 EVERY SECOND DAY DAILY CHANGE WITH TESTOGEL 50 MG.
     Route: 062
     Dates: start: 2016
  4. TESTOGEL [Suspect]
     Active Substance: TESTOSTERONE
     Dosage: SINCE 2016 EVERY SECOND DAY DAILY CHANGE WITH TESTOGEL 25 MG
     Route: 062
     Dates: start: 2016

REACTIONS (3)
  - Blood testosterone increased [Unknown]
  - Prostate cancer stage I [Not Recovered/Not Resolved]
  - Contraindicated product administered [Unknown]

NARRATIVE: CASE EVENT DATE: 2018
